FAERS Safety Report 9316729 (Version 1)
Quarter: 2013Q2

REPORT INFORMATION
  Report Type: Spontaneous
  Country: US (occurrence: None)
  Receive Date: 20130528
  Receipt Date: 20130528
  Transmission Date: 20140414
  Serious: Yes (Hospitalization)
  Sender: FDA-Public Use
  Company Number: None

PATIENT
  Age: 19 Year
  Sex: Female

DRUGS (1)
  1. BEYAZ [Suspect]
     Indication: CONTRACEPTION
     Dosage: 1 TABLET
     Route: 048
     Dates: start: 2009

REACTIONS (6)
  - Headache [None]
  - Nausea [None]
  - Vomiting [None]
  - Photophobia [None]
  - Phonophobia [None]
  - Superior sagittal sinus thrombosis [None]
